FAERS Safety Report 5765981-2 (Version None)
Quarter: 2008Q2

REPORT INFORMATION
  Report Type: 
  Country: None (occurrence: None)
  Receive Date: 20080611
  Receipt Date: 20080204
  Transmission Date: 20081010
  Serious: No
  Sender: FDA-Public Use
  Company Number: US-BRISTOL-MYERS SQUIBB COMPANY-14110365

PATIENT

DRUGS (1)
  1. SINEMET [Suspect]

REACTIONS (2)
  - PAIN IN EXTREMITY [None]
  - PALPITATIONS [None]
